FAERS Safety Report 23265766 (Version 3)
Quarter: 2023Q4

REPORT INFORMATION
  Report Type: Spontaneous
  Country: US (occurrence: US)
  Receive Date: 20231206
  Receipt Date: 20231229
  Transmission Date: 20240109
  Serious: Yes (Other)
  Sender: FDA-Public Use
  Company Number: US-CSLP-12804548484-V10333179-26

PATIENT
  Age: 26 Year
  Sex: Male

DRUGS (2)
  1. ANTICOAGULANT SODIUM CITRATE [Suspect]
     Active Substance: SODIUM CITRATE
     Indication: Anticoagulant therapy
     Route: 050
     Dates: start: 20231126, end: 20221126
  2. Multivitamin otc for supplement [Concomitant]
     Indication: Vitamin supplementation

REACTIONS (8)
  - Loss of consciousness [Recovered/Resolved]
  - Auditory disorder [Recovered/Resolved]
  - Tinnitus [Recovered/Resolved]
  - Chills [Recovered/Resolved]
  - Vision blurred [Recovered/Resolved]
  - Feeling cold [Recovered/Resolved]
  - Abdominal discomfort [Recovered/Resolved]
  - Dyspepsia [Recovered/Resolved]

NARRATIVE: CASE EVENT DATE: 20231126
